FAERS Safety Report 10159171 (Version 1)
Quarter: 2014Q2

REPORT INFORMATION
  Report Type: Spontaneous
  Country: US (occurrence: None)
  Receive Date: 20140507
  Receipt Date: 20140507
  Transmission Date: 20141212
  Serious: Yes (Other)
  Sender: FDA-Public Use
  Company Number: None

PATIENT
  Sex: Female
  Weight: 66.8 kg

DRUGS (1)
  1. XELJANZ [Suspect]
     Indication: RHEUMATIC DISORDER
     Route: 048
     Dates: start: 201309, end: 201402

REACTIONS (3)
  - Herpes zoster [None]
  - Therapy cessation [None]
  - Drug ineffective [None]
